FAERS Safety Report 9066801 (Version 2)
Quarter: 2013Q2

REPORT INFORMATION
  Report Type: Report from Study
  Country: JP (occurrence: JP)
  Receive Date: 20130214
  Receipt Date: 20130429
  Transmission Date: 20140414
  Serious: Yes (Other)
  Sender: FDA-Public Use
  Company Number: JP-GLAXOSMITHKLINE-B0860790A

PATIENT
  Age: 66 Year
  Sex: Female
  Weight: 56 kg

DRUGS (16)
  1. LAMICTAL [Suspect]
     Indication: BIPOLAR II DISORDER
     Dosage: 25MG PER DAY
     Route: 048
     Dates: start: 20120414, end: 20120518
  2. LAMICTAL [Suspect]
     Indication: BIPOLAR II DISORDER
     Dosage: 50MG PER DAY
     Route: 048
     Dates: start: 20120519, end: 20120720
  3. LAMICTAL [Suspect]
     Indication: BIPOLAR II DISORDER
     Dosage: 75MG PER DAY
     Route: 048
     Dates: start: 20120721, end: 20120817
  4. LAMICTAL [Suspect]
     Indication: BIPOLAR II DISORDER
     Dosage: 100MG PER DAY
     Route: 048
     Dates: start: 20120818
  5. SEROQUEL [Suspect]
     Indication: DEPRESSION
     Route: 048
     Dates: start: 20120414, end: 20120518
  6. SEROQUEL [Suspect]
     Indication: DEPRESSION
     Route: 048
     Dates: start: 20120519, end: 20120622
  7. CYMBALTA [Concomitant]
     Indication: DEPRESSION
     Route: 048
     Dates: end: 20120914
  8. CYMBALTA [Concomitant]
     Indication: DEPRESSION
     Route: 048
     Dates: start: 20120915, end: 20130118
  9. CYMBALTA [Concomitant]
     Indication: DEPRESSION
     Route: 048
     Dates: start: 20130119, end: 20130412
  10. BI-SIFROL [Concomitant]
     Indication: DEPRESSION
     Route: 048
     Dates: end: 20120914
  11. BI-SIFROL [Concomitant]
     Indication: DEPRESSION
     Route: 048
     Dates: start: 20120915
  12. THYRADIN [Concomitant]
     Dosage: 75MCG PER DAY
     Route: 048
     Dates: end: 20121019
  13. THYRADIN [Concomitant]
     Dosage: 100MCG PER DAY
     Route: 048
     Dates: start: 20121020
  14. SENNOSIDE [Concomitant]
     Dosage: 24MG PER DAY
     Route: 048
     Dates: end: 20121214
  15. MAGMITT [Concomitant]
     Dosage: 660MG PER DAY
     Route: 048
     Dates: end: 20121019
  16. MAGMITT [Concomitant]
     Dosage: 330MG PER DAY
     Route: 048
     Dates: start: 20121020, end: 20121116

REACTIONS (1)
  - Diabetes mellitus [Recovering/Resolving]
